FAERS Safety Report 24054565 (Version 1)
Quarter: 2024Q3

REPORT INFORMATION
  Report Type: Spontaneous
  Country: JP (occurrence: JP)
  Receive Date: 20240705
  Receipt Date: 20240705
  Transmission Date: 20241017
  Serious: Yes (Other)
  Sender: RANBAXY
  Company Number: JP-SUN PHARMACEUTICAL INDUSTRIES LTD-2024RR-455062

PATIENT
  Age: 48 Year
  Sex: Female

DRUGS (2)
  1. GEMCITABINE [Suspect]
     Active Substance: GEMCITABINE
     Indication: Bladder cancer
     Dosage: FOUR CYCLES OF GEMCITABINE/CISPLATIN (GC) CHEMOTHERAPY
     Route: 065
  2. CISPLATIN [Suspect]
     Active Substance: CISPLATIN
     Indication: Bladder cancer
     Dosage: FOUR CYCLES OF GEMCITABINE/CISPLATIN (GC) CHEMOTHERAPY
     Route: 065
     Dates: start: 202012

REACTIONS (1)
  - Disease progression [Unknown]
